FAERS Safety Report 9084266 (Version 1)
Quarter: 2013Q1

REPORT INFORMATION
  Report Type: Report from Study
  Country: US (occurrence: US)
  Receive Date: 20130129
  Receipt Date: 20130129
  Transmission Date: 20140127
  Serious: No
  Sender: FDA-Public Use
  Company Number: US-ABBOTT-12P-163-0948360-00

PATIENT
  Age: 52 Year
  Sex: Female

DRUGS (3)
  1. HUMIRA 40 MG/0.8 ML PEN [Suspect]
     Indication: PSORIATIC ARTHROPATHY
     Route: 058
     Dates: start: 20120607
  2. LISINOPRIL HCTZ [Concomitant]
     Indication: HYPERTENSION
     Dosage: 20/12.5MG DAILY
  3. IBUPROFEN [Concomitant]
     Indication: PAIN
     Dosage: 800MG ONE TO THREE TABLETS DAILY

REACTIONS (7)
  - Tongue pruritus [Recovering/Resolving]
  - Pruritus [Recovering/Resolving]
  - Pruritus [Recovering/Resolving]
  - Papule [Not Recovered/Not Resolved]
  - Blister [Not Recovered/Not Resolved]
  - Rash pustular [Not Recovered/Not Resolved]
  - Livedo reticularis [Not Recovered/Not Resolved]
